FAERS Safety Report 4475495-8 (Version None)
Quarter: 2004Q4

REPORT INFORMATION
  Report Type: 
  Country: None (occurrence: None)
  Receive Date: 20041015
  Receipt Date: 20020207
  Transmission Date: 20050328
  Serious: Yes (Hospitalization, Disabling)
  Sender: FDA-Public Use
  Company Number: US-MERCK-0202USA00857

PATIENT
  Age: 47 Year
  Sex: Female
  Weight: 86 kg

DRUGS (19)
  1. DARVOCET-N 100 [Concomitant]
     Indication: PAIN
     Route: 065
     Dates: start: 19850101
  2. CHONDROITIN [Concomitant]
     Route: 065
     Dates: start: 19960101
  3. VOLTAREN [Concomitant]
     Route: 065
     Dates: start: 19970101, end: 20010101
  4. EVENING PRIMROSE OIL [Concomitant]
     Route: 065
     Dates: start: 19960101
  5. GLUCOSAMINE [Concomitant]
     Route: 065
     Dates: start: 19960101
  6. HUMIBID [Concomitant]
     Indication: SINUS DISORDER
     Route: 065
     Dates: end: 20020128
  7. ENTEX CAP [Concomitant]
     Route: 065
  8. MAXZIDE [Concomitant]
     Indication: SWELLING
     Route: 065
     Dates: start: 19950101
  9. PREVACID [Concomitant]
     Indication: GASTROOESOPHAGEAL REFLUX DISEASE
     Route: 065
     Dates: start: 20010628
  10. CLARITIN-D [Concomitant]
     Indication: SINUS DISORDER
     Route: 065
     Dates: start: 19970407, end: 20020128
  11. NASONEX [Concomitant]
     Indication: SINUS DISORDER
     Route: 065
     Dates: start: 19991227, end: 20020128
  12. NAPROSYN [Concomitant]
     Route: 065
     Dates: start: 19850101, end: 19970101
  13. INDERAL LA [Concomitant]
     Indication: MIGRAINE
     Route: 065
     Dates: start: 19970101
  14. INDERAL LA [Concomitant]
     Indication: CARDIAC DISORDER
     Route: 065
     Dates: start: 19970101
  15. PSEUDOEPHEDRINE [Concomitant]
     Route: 065
  16. ZANTAC [Concomitant]
     Indication: DYSPEPSIA
     Route: 065
     Dates: start: 20010101
  17. VIOXX [Suspect]
     Indication: MENISCUS LESION
     Route: 048
     Dates: start: 20000901, end: 20020128
  18. VIOXX [Suspect]
     Indication: LOCALISED OSTEOARTHRITIS
     Route: 048
     Dates: start: 20000901, end: 20020128
  19. BACTRIM [Concomitant]
     Route: 065

REACTIONS (9)
  - ACUTE MYOCARDIAL INFARCTION [None]
  - ARTERIOSPASM CORONARY [None]
  - BACK INJURY [None]
  - DYSPEPSIA [None]
  - INTERVERTEBRAL DISC DISPLACEMENT [None]
  - NEURALGIA [None]
  - SACROILIITIS [None]
  - TACHYARRHYTHMIA [None]
  - WEIGHT INCREASED [None]
